FAERS Safety Report 12396423 (Version 1)
Quarter: 2016Q2

REPORT INFORMATION
  Report Type: Spontaneous
  Country: US (occurrence: None)
  Receive Date: 20160523
  Receipt Date: 20160523
  Transmission Date: 20160815
  Serious: Yes (Death)
  Sender: FDA-Public Use
  Company Number: None

PATIENT
  Age: 71 Year
  Sex: Female
  Weight: 60 kg

DRUGS (19)
  1. METOPROLOL XL [Concomitant]
     Active Substance: METOPROLOL SUCCINATE
  2. ALLOPURINOL. [Concomitant]
     Active Substance: ALLOPURINOL
  3. ESTRADIOL. [Concomitant]
     Active Substance: ESTRADIOL
  4. CALCIUM CARBONATE. [Concomitant]
     Active Substance: CALCIUM CARBONATE
  5. SIMVASTATIN. [Concomitant]
     Active Substance: SIMVASTATIN
  6. PROGESTERONE. [Concomitant]
     Active Substance: PROGESTERONE
  7. DOCULSATE [Concomitant]
  8. NAPROXEN. [Concomitant]
     Active Substance: NAPROXEN
  9. PRESERVISION [Concomitant]
     Active Substance: MINERALS\VITAMINS
  10. CHOLECALCIFEROL [Concomitant]
     Active Substance: CHOLECALCIFEROL
  11. BUPROPION. [Concomitant]
     Active Substance: BUPROPION
  12. VERAPAMIL [Concomitant]
     Active Substance: VERAPAMIL HYDROCHLORIDE
  13. VITAMIN B12 [Concomitant]
     Active Substance: CYANOCOBALAMIN
  14. CHONDROITIN GLUCOSAMINE [Concomitant]
  15. VITAMION B6 [Concomitant]
  16. CULTURELLE [Concomitant]
     Active Substance: LACTOBACILLUS RHAMNOSUS
  17. OBINUTUZUMAB [Suspect]
     Active Substance: OBINUTUZUMAB
     Indication: CHRONIC LYMPHOCYTIC LEUKAEMIA
     Dosage: 208 MG INTRAVENOUS (NOT OTHERWISE SPECIFIED)
     Route: 042
     Dates: start: 20160517, end: 20160518
  18. CHLORAMBUCIL [Suspect]
     Active Substance: CHLORAMBUCIL
     Indication: CHRONIC LYMPHOCYTIC LEUKAEMIA
     Dosage: 30 MG ONCE (DAY 1) ORAL
     Route: 048
     Dates: start: 20160517
  19. FOLIC ACID. [Concomitant]
     Active Substance: FOLIC ACID

REACTIONS (6)
  - Subdural haematoma [None]
  - Headache [None]
  - Platelet count decreased [None]
  - Infusion related reaction [None]
  - Vomiting [None]
  - Hot flush [None]

NARRATIVE: CASE EVENT DATE: 20160518
